FAERS Safety Report 23755560 (Version 1)
Quarter: 2024Q2

REPORT INFORMATION
  Report Type: Spontaneous
  Country: AU (occurrence: AU)
  Receive Date: 20240418
  Receipt Date: 20240418
  Transmission Date: 20240716
  Serious: Yes (Other)
  Sender: FDA-Public Use
  Company Number: AU-BAXTER-2024BAX016687

PATIENT
  Age: 69 Year
  Sex: Male

DRUGS (17)
  1. CYCLOPHOSPHAMIDE [Suspect]
     Active Substance: CYCLOPHOSPHAMIDE
     Indication: Product used for unknown indication
     Dosage: UNK, ROUTE OF ADMINISTRATION: INFORMATION NOT PROVIDED BY SPONSOR
     Route: 065
  2. IFOSFAMIDE [Suspect]
     Active Substance: IFOSFAMIDE
     Indication: Product used for unknown indication
     Dosage: UNK, ROUTE OF ADMINISTRATION: INFORMATION NOT PROVIDED BY SPONSOR
     Route: 065
  3. MESNA [Suspect]
     Active Substance: MESNA
     Indication: Product used for unknown indication
     Dosage: UNK, ROUTE OF ADMINISTRATION: INFORMATION NOT PROVIDED BY SPONSOR
     Route: 065
  4. DOXORUBICIN [Suspect]
     Active Substance: DOXORUBICIN
     Indication: Product used for unknown indication
     Dosage: UNK, ROUTE OF ADMINISTRATION: INFORMATION NOT PROVIDED BY SPONSOR
     Route: 065
  5. RIBOMUSTIN [Suspect]
     Active Substance: BENDAMUSTINE HYDROCHLORIDE
     Indication: Diffuse large B-cell lymphoma
     Dosage: 90 MG
     Route: 042
  6. CARBOPLATIN [Suspect]
     Active Substance: CARBOPLATIN
     Indication: Product used for unknown indication
     Dosage: UNK, ROUTE OF ADMINISTRATION: INFORMATION NOT PROVIDED BY SPONSOR
     Route: 065
  7. CISPLATIN [Suspect]
     Active Substance: CISPLATIN
     Indication: Product used for unknown indication
     Dosage: UNK, ROUTE OF ADMINISTRATION: INFORMATION NOT PROVIDED BY SPONSOR
     Route: 065
  8. CYTARABINE [Suspect]
     Active Substance: CYTARABINE
     Indication: Product used for unknown indication
     Dosage: UNK, ROUTE OF ADMINISTRATION: INFORMATION NOT PROVIDED BY SPONSOR
     Route: 065
  9. ETOPOSIDE [Suspect]
     Active Substance: ETOPOSIDE
     Indication: Product used for unknown indication
     Dosage: UNK, ROUTE OF ADMINISTRATION: INFORMATION NOT PROVIDED BY SPONSOR
     Route: 065
  10. FILGRASTIM [Suspect]
     Active Substance: FILGRASTIM
     Indication: Product used for unknown indication
     Dosage: UNK, ROUTE OF ADMINISTRATION: INFORMATION NOT PROVIDED BY SPONSOR
     Route: 065
  11. METHYLPREDNISOLONE [Suspect]
     Active Substance: METHYLPREDNISOLONE
     Indication: Product used for unknown indication
     Dosage: UNK, ROUTE OF ADMINISTRATION: INFORMATION NOT PROVIDED BY SPONSOR
     Route: 065
  12. PEGFILGRASTIM [Suspect]
     Active Substance: PEGFILGRASTIM
     Indication: Product used for unknown indication
     Dosage: UNK, ROUTE OF ADMINISTRATION: INFORMATION NOT PROVIDED BY SPONSOR
     Route: 065
  13. POLATUZUMAB VEDOTIN [Suspect]
     Active Substance: POLATUZUMAB VEDOTIN
     Indication: Diffuse large B-cell lymphoma
     Dosage: 1.8 MG/KG
     Route: 042
  14. PREDNISOLONE [Suspect]
     Active Substance: PREDNISOLONE
     Indication: Product used for unknown indication
     Dosage: UNK, ROUTE OF ADMINISTRATION: INFORMATION NOT PROVIDED BY SPONSOR
     Route: 065
  15. RITUXIMAB [Suspect]
     Active Substance: RITUXIMAB
     Indication: Diffuse large B-cell lymphoma
     Dosage: 375 MILLIGRAM/SQUARE METRE, INFUSION
     Route: 042
  16. TAFASITAMAB [Suspect]
     Active Substance: TAFASITAMAB
     Indication: Product used for unknown indication
     Dosage: UNK, ROUTE OF ADMINISTRATION: INFORMATION NOT PROVIDED BY SPONSOR
     Route: 065
  17. VINCRISTINE SULFATE [Suspect]
     Active Substance: VINCRISTINE SULFATE
     Indication: Product used for unknown indication
     Dosage: UNK, ROUTE OF ADMINISTRATION: INFORMATION NOT PROVIDED BY SPONSOR
     Route: 065

REACTIONS (4)
  - Ill-defined disorder [Unknown]
  - Drug ineffective [Unknown]
  - Disease progression [Unknown]
  - General physical health deterioration [Unknown]

NARRATIVE: CASE EVENT DATE: 20200420
